FAERS Safety Report 7545179-8 (Version None)
Quarter: 2011Q2

REPORT INFORMATION
  Report Type: 
  Country: None (occurrence: None)
  Receive Date: 20110524
  Receipt Date: 20110215
  Transmission Date: 20111010
  Serious: No
  Sender: FDA-Public Use
  Company Number: 027669

PATIENT
  Sex: Female
  Weight: 133 kg

DRUGS (10)
  1. M.V.I. [Concomitant]
  2. ALENDRONATE SODIUM [Concomitant]
  3. FISH OIL [Concomitant]
  4. VITAMIN D [Concomitant]
  5. FOLIC ACID [Concomitant]
  6. LEXAPRO [Concomitant]
  7. CALCIUM CITRATE [Concomitant]
  8. CIMZIA [Suspect]
     Indication: CROHN'S DISEASE
     Dosage: (400 MG 1X/4 WEEKS SUBCUTANEOUS)
     Route: 058
     Dates: start: 20100601
  9. AMITRIPTYLINE HCL [Concomitant]
  10. PENTASA [Concomitant]

REACTIONS (1)
  - WEIGHT DECREASED [None]
